FAERS Safety Report 9774230 (Version 1)
Quarter: 2013Q4

REPORT INFORMATION
  Report Type: Spontaneous
  Country: FR (occurrence: FR)
  Receive Date: 20131220
  Receipt Date: 20131220
  Transmission Date: 20140711
  Serious: Yes (Hospitalization)
  Sender: FDA-Public Use
  Company Number: FR-009507513-1312FRA007016

PATIENT
  Age: 24 Year
  Sex: Female

DRUGS (3)
  1. TEMODAL [Suspect]
     Indication: GLIOBLASTOMA
     Dosage: UNK
     Route: 048
     Dates: start: 20130226, end: 20130410
  2. TEMODAL [Suspect]
     Dosage: UNK
     Route: 048
     Dates: start: 20131007, end: 20131011
  3. TEMODAL [Suspect]
     Dosage: UNK
     Route: 048
     Dates: start: 20131104

REACTIONS (1)
  - Urticaria [Recovered/Resolved]
